APPROVED DRUG PRODUCT: PRASUGREL
Active Ingredient: PRASUGREL HYDROCHLORIDE
Strength: EQ 5MG BASE
Dosage Form/Route: TABLET;ORAL
Application: A205987 | Product #001 | TE Code: AB
Applicant: ACCORD HEALTHCARE INC
Approved: Feb 2, 2018 | RLD: No | RS: No | Type: RX